FAERS Safety Report 16629531 (Version 4)
Quarter: 2020Q2

REPORT INFORMATION
  Report Type: Report from Study
  Country: US (occurrence: US)
  Receive Date: 20190725
  Receipt Date: 20200421
  Transmission Date: 20200713
  Serious: Yes (Hospitalization, Other)
  Sender: FDA-Public Use
  Company Number: PHEH2019US030187

PATIENT
  Age: 70 Year
  Sex: Male

DRUGS (3)
  1. ENTRESTO [Suspect]
     Active Substance: SACUBITRIL\VALSARTAN
     Indication: CARDIAC FAILURE CONGESTIVE
     Dosage: UNK
     Route: 048
     Dates: start: 201903
  2. ELIQUIS [Suspect]
     Active Substance: APIXABAN
     Indication: PRODUCT USED FOR UNKNOWN INDICATION
     Route: 065
  3. SIMVASTATIN. [Suspect]
     Active Substance: SIMVASTATIN
     Indication: PRODUCT USED FOR UNKNOWN INDICATION
     Route: 065

REACTIONS (15)
  - Haemorrhage [Unknown]
  - Idiopathic pulmonary fibrosis [Not Recovered/Not Resolved]
  - Atrial fibrillation [Unknown]
  - Urinary tract infection [Unknown]
  - Dysphagia [Unknown]
  - Asthenia [Unknown]
  - Night sweats [Not Recovered/Not Resolved]
  - Blood potassium increased [Unknown]
  - Gastric hypomotility [Unknown]
  - Arrhythmia [Unknown]
  - Frequent bowel movements [Not Recovered/Not Resolved]
  - Chest discomfort [Unknown]
  - Post procedural haemorrhage [Recovered/Resolved]
  - Pain [Unknown]
  - Discomfort [Unknown]

NARRATIVE: CASE EVENT DATE: 201912
